FAERS Safety Report 5384998-3 (Version None)
Quarter: 2007Q3

REPORT INFORMATION
  Report Type: 
  Country: None (occurrence: None)
  Receive Date: 20070712
  Receipt Date: 20070703
  Transmission Date: 20080115
  Serious: Yes (Other)
  Sender: FDA-Public Use
  Company Number: PHFR2007GB01387

PATIENT
  Age: 64 Year
  Sex: Female

DRUGS (1)
  1. FEMARA [Suspect]
     Indication: BREAST CANCER
     Route: 065
     Dates: start: 20060901

REACTIONS (5)
  - HAIR GROWTH ABNORMAL [None]
  - HYPOTRICHOSIS [None]
  - LICHEN PLANUS [None]
  - SKIN DISORDER [None]
  - WEIGHT INCREASED [None]
